FAERS Safety Report 8590635-7 (Version None)
Quarter: 2012Q3

REPORT INFORMATION
  Report Type: 
  Country: None (occurrence: None)
  Receive Date: 20120813
  Receipt Date: 20120808
  Transmission Date: 20120928
  Serious: No
  Sender: FDA-Public Use
  Company Number: US-PFIZER INC-2012193724

PATIENT
  Sex: Male

DRUGS (3)
  1. CADUET [Suspect]
     Dosage: [AMLODIPINE 10MG]/[ATORVASTATIN 20MG], 1X/DAY
     Route: 048
  2. CADUET [Suspect]
     Dosage: [AMLODIPINE 10MG]/[ATORVASTATIN 40MG], 1X/DAY
     Route: 048
     Dates: end: 20120101
  3. CADUET [Suspect]
     Indication: PULMONARY HYPERTENSION
     Dosage: [AMLODIPINE 10MG]/[ATORVASTATIN 10MG], 1X/DAY
     Route: 048
     Dates: start: 20070301, end: 20120101

REACTIONS (1)
  - BLOOD PRESSURE INCREASED [None]
